FAERS Safety Report 10032151 (Version 2)
Quarter: 2014Q1

REPORT INFORMATION
  Report Type: Spontaneous
  Country: US (occurrence: US)
  Receive Date: 20140324
  Receipt Date: 20140324
  Transmission Date: 20141002
  Serious: Yes (Other)
  Sender: FDA-Public Use
  Company Number: US-GE HEALTHCARE MEDICAL DIAGNOSTICS-OSCN-PR-0806S-0322

PATIENT
  Sex: Female

DRUGS (11)
  1. OMNISCAN [Suspect]
     Indication: INTRAVENTRICULAR HAEMORRHAGE
     Route: 042
     Dates: start: 20030114, end: 20030114
  2. OMNISCAN [Suspect]
     Indication: SUBARACHNOID HAEMORRHAGE
     Route: 042
     Dates: start: 20030129, end: 20030129
  3. OMNISCAN [Suspect]
     Indication: CHOLECYSTOGRAM INTRAVENOUS
     Route: 042
     Dates: start: 20040302, end: 20040302
  4. OMNISCAN [Suspect]
     Indication: INTERVERTEBRAL DISCITIS
     Route: 042
     Dates: start: 20040428, end: 20040428
  5. OMNISCAN [Suspect]
     Indication: EXTRADURAL ABSCESS
     Route: 042
     Dates: start: 20040504, end: 20040504
  6. OMNISCAN [Suspect]
     Indication: OSTEOMYELITIS
     Route: 042
     Dates: start: 20040518, end: 20040518
  7. OMNISCAN [Suspect]
     Indication: INTERVERTEBRAL DISCITIS
     Route: 042
     Dates: start: 20040701, end: 20040701
  8. OMNISCAN [Suspect]
     Indication: BACK PAIN
     Route: 042
     Dates: start: 20041019, end: 20041019
  9. OMNISCAN [Suspect]
     Indication: OSTEOMYELITIS
     Route: 042
     Dates: start: 20050314, end: 20050314
  10. MAGNEVIST [Suspect]
     Indication: PAIN
     Route: 042
     Dates: start: 20070320, end: 20070320
  11. EPOGEN [Concomitant]

REACTIONS (1)
  - Nephrogenic systemic fibrosis [Not Recovered/Not Resolved]
